FAERS Safety Report 25438067 (Version 2)
Quarter: 2025Q4

REPORT INFORMATION
  Report Type: Spontaneous
  Country: EU (occurrence: EU)
  Receive Date: 20250616
  Receipt Date: 20251003
  Transmission Date: 20260117
  Serious: Yes (Death, Other)
  Sender: SANOFI AVENTIS
  Company Number: EU-DialogSolutions-SAAVPROD-PI787442-C2

PATIENT
  Age: 58 Year
  Sex: Male

DRUGS (2)
  1. LEFLUNOMIDE [Suspect]
     Active Substance: LEFLUNOMIDE
     Indication: Rheumatoid arthritis
     Dosage: 100 MG
  2. LEFLUNOMIDE [Suspect]
     Active Substance: LEFLUNOMIDE
     Dosage: 20 MG, QD

REACTIONS (6)
  - Multiple organ dysfunction syndrome [Fatal]
  - Sepsis [Fatal]
  - Cutaneous vasculitis [Unknown]
  - Purpura [Unknown]
  - Skin lesion [Unknown]
  - Skin necrosis [Unknown]
